FAERS Safety Report 6969070-0 (Version None)
Quarter: 2010Q3

REPORT INFORMATION
  Report Type: 
  Country: None (occurrence: None)
  Receive Date: 20100903
  Receipt Date: 20100903
  Transmission Date: 20110219
  Serious: Yes (Life-Threatening)
  Sender: FDA-Public Use
  Company Number: None

PATIENT
  Age: 35 Year
  Sex: Female
  Weight: 86.1834 kg

DRUGS (1)
  1. ZOLOFT [Suspect]

REACTIONS (5)
  - AGGRESSION [None]
  - ANGER [None]
  - DRUG DEPENDENCE [None]
  - LEGAL PROBLEM [None]
  - LOSS OF CONSCIOUSNESS [None]
